FAERS Safety Report 18393409 (Version 1)
Quarter: 2020Q4

REPORT INFORMATION
  Report Type: Spontaneous
  Country: US (occurrence: US)
  Receive Date: 20201016
  Receipt Date: 20201016
  Transmission Date: 20210114
  Serious: Yes (Other)
  Sender: FDA-Public Use
  Company Number: US-ASCEND THERAPEUTICS US, LLC-2092864

PATIENT
  Age: 60 Year
  Sex: Female

DRUGS (1)
  1. BINOSTO [Suspect]
     Active Substance: ALENDRONATE SODIUM
     Indication: OSTEOPOROSIS
     Route: 048
     Dates: end: 2018

REACTIONS (9)
  - Hiatus hernia [Unknown]
  - Dyspepsia [Recovering/Resolving]
  - Oesophagitis [Unknown]
  - Gastritis [Unknown]
  - Dysphagia [Recovering/Resolving]
  - Oesophageal mucosal tear [Unknown]
  - Nausea [Recovering/Resolving]
  - Gastric mucosa erythema [Unknown]
  - Barrett^s oesophagus [Not Recovered/Not Resolved]

NARRATIVE: CASE EVENT DATE: 201702
